FAERS Safety Report 5316378-0 (Version None)
Quarter: 2007Q2

REPORT INFORMATION
  Report Type: 
  Country: None (occurrence: None)
  Receive Date: 20070430
  Receipt Date: 20070417
  Transmission Date: 20071010
  Serious: Yes (Other)
  Sender: FDA-Public Use
  Company Number: 2007SP002453

PATIENT
  Age: 50 Year
  Sex: Female
  Weight: 70.3075 kg

DRUGS (5)
  1. CLARITIN-D 24 HOUR [Suspect]
     Indication: HYPERSENSITIVITY
     Dosage: 1 DF; PRN; PO
     Route: 048
     Dates: start: 20050101, end: 20060101
  2. CLARITIN-D 24 HOUR [Suspect]
     Indication: SINUS CONGESTION
     Dosage: 1 DF; PRN; PO
     Route: 048
     Dates: start: 20050101, end: 20060101
  3. SINGULAIR [Suspect]
  4. ALLEGRA [Suspect]
  5. DECONSAL II (CON.) [Concomitant]

REACTIONS (1)
  - CHEST PAIN [None]
